FAERS Safety Report 9068383 (Version 1)
Quarter: 2013Q1

REPORT INFORMATION
  Report Type: Spontaneous
  Country: JP (occurrence: JP)
  Receive Date: 20130206
  Receipt Date: 20130206
  Transmission Date: 20140127
  Serious: Yes (Other)
  Sender: FDA-Public Use
  Company Number: JP-PFIZER INC-2013041111

PATIENT
  Sex: Male
  Weight: 1.07 kg

DRUGS (10)
  1. SPIRONOLACTONE [Suspect]
     Route: 064
  2. PILSICAINIDE HYDROCHLORIDE [Suspect]
     Route: 064
  3. FUROSEMIDE [Suspect]
     Route: 064
  4. HYDROCHLOROTHIAZIDE [Suspect]
     Route: 064
  5. WARFARIN [Suspect]
     Route: 064
  6. HEPARIN [Suspect]
     Route: 064
  7. ACETYLSALICYLIC ACID [Suspect]
     Route: 064
  8. DIGOXIN [Suspect]
     Route: 064
  9. DANAPAROID SODIUM [Suspect]
     Route: 064
  10. POTASSIUM [Suspect]
     Route: 064

REACTIONS (2)
  - Maternal exposure during pregnancy [Unknown]
  - Premature baby [Unknown]
